FAERS Safety Report 5787029-6 (Version None)
Quarter: 2008Q2

REPORT INFORMATION
  Report Type: 
  Country: None (occurrence: None)
  Receive Date: 20080618
  Receipt Date: 20070912
  Transmission Date: 20081010
  Serious: Yes (Other)
  Sender: FDA-Public Use
  Company Number: 200620120US

PATIENT
  Age: 60 Year
  Sex: Male
  Weight: 120 kg

DRUGS (16)
  1. LANTUS [Suspect]
     Indication: TYPE 2 DIABETES MELLITUS
     Dosage: 40 U QAM
     Dates: start: 20061214
  2. OPTICLIK [Suspect]
     Indication: TYPE 2 DIABETES MELLITUS
     Dates: start: 20061214
  3. APIDRA [Suspect]
     Indication: TYPE 2 DIABETES MELLITUS
     Dates: start: 20061214
  4. OPTICLIK [Suspect]
     Indication: TYPE 2 DIABETES MELLITUS
     Dates: start: 20061214
  5. COLESEVELAM HYDROCHLORIDE (WELCHOL) [Concomitant]
  6. LIPITOR [Concomitant]
  7. ESCITALOPRAM OXALATE [Concomitant]
  8. METOPROLOL SUCCINATE (TOPROL) [Concomitant]
  9. QUINAPRIL [Concomitant]
  10. AMLODIPINE (NORVASC /00972401/) [Concomitant]
  11. ZETIA [Concomitant]
  12. ISOSORBIDE DINITRATE [Concomitant]
  13. LASIX [Concomitant]
  14. HYDROCHLOROTHIAZIDE [Concomitant]
  15. INSULIN HUMAN, INSULIN HUMAN INJECTION, ISOPHANE (NOVOLIN 70/30) [Concomitant]
  16. INSULIN HUMAN (NOVOLIN R) [Concomitant]

REACTIONS (3)
  - BLOOD GLUCOSE DECREASED [None]
  - DRUG INEFFECTIVE [None]
  - HYPERGLYCAEMIA [None]
